FAERS Safety Report 7078607-5 (Version None)
Quarter: 2010Q4

REPORT INFORMATION
  Report Type: 
  Country: None (occurrence: None)
  Receive Date: 20101101
  Receipt Date: 20101101
  Transmission Date: 20110411
  Serious: No
  Sender: FDA-Public Use
  Company Number: None

PATIENT
  Sex: Male
  Weight: 14.9687 kg

DRUGS (1)
  1. BUDESONIDE INHALATION 0.25 MG/2 ML TEVA [Suspect]
     Indication: ASTHMA
     Dosage: 2ML VIAL EVERY 12 HOURS INHAL
     Route: 055
     Dates: start: 20101025, end: 20101028

REACTIONS (2)
  - AGGRESSION [None]
  - PRODUCT QUALITY ISSUE [None]
